FAERS Safety Report 4726357-X (Version None)
Quarter: 2005Q3

REPORT INFORMATION
  Report Type: 
  Country: None (occurrence: None)
  Receive Date: 20050725
  Receipt Date: 20050718
  Transmission Date: 20060218
  Serious: Yes (Other)
  Sender: FDA-Public Use
  Company Number: 2005092107

PATIENT
  Sex: Female

DRUGS (1)
  1. CABASERIL (CABERGOLINE) [Suspect]
     Indication: ILL-DEFINED DISORDER
     Dosage: ORAL
     Route: 048

REACTIONS (3)
  - BILE DUCT STONE [None]
  - HEPATIC ENZYME INCREASED [None]
  - PANCREATITIS [None]
